FAERS Safety Report 16496301 (Version 1)
Quarter: 2019Q2

REPORT INFORMATION
  Report Type: Spontaneous
  Country: US (occurrence: US)
  Receive Date: 20190628
  Receipt Date: 20190628
  Transmission Date: 20190711
  Serious: Yes (Other)
  Sender: FDA-Public Use
  Company Number: US-BIOGEN-2019BI00756043

PATIENT

DRUGS (2)
  1. TYSABRI [Suspect]
     Active Substance: NATALIZUMAB
     Route: 063
  2. TYSABRI [Suspect]
     Active Substance: NATALIZUMAB
     Indication: MATERNAL EXPOSURE TIMING UNSPECIFIED
     Route: 064

REACTIONS (3)
  - Small for dates baby [Unknown]
  - Foetal exposure during pregnancy [Recovered/Resolved]
  - Exposure via breast milk [Recovered/Resolved]
